FAERS Safety Report 25181332 (Version 1)
Quarter: 2025Q2

REPORT INFORMATION
  Report Type: Spontaneous
  Country: CA (occurrence: CA)
  Receive Date: 20250410
  Receipt Date: 20250410
  Transmission Date: 20250717
  Serious: Yes (Death, Hospitalization, Other)
  Sender: ACCORD
  Company Number: None

PATIENT
  Age: 84 Year
  Sex: Male

DRUGS (1)
  1. QUETIAPINE FUMARATE [Suspect]
     Active Substance: QUETIAPINE FUMARATE
     Indication: Insomnia

REACTIONS (5)
  - Overdose [Fatal]
  - Delirium [Fatal]
  - Hypocarnitinaemia [Fatal]
  - Cardiac arrest [Fatal]
  - Drug interaction [Fatal]
